FAERS Safety Report 6803019-6 (Version None)
Quarter: 2010Q2

REPORT INFORMATION
  Report Type: 
  Country: None (occurrence: None)
  Receive Date: 20100628
  Receipt Date: 20100616
  Transmission Date: 20101027
  Serious: Yes (Hospitalization)
  Sender: FDA-Public Use
  Company Number: JP-PFIZER INC-2009204237

PATIENT
  Age: 59 Year
  Sex: Male
  Weight: 64.7 kg

DRUGS (6)
  1. SUNITINIB MALATE [Suspect]
     Indication: RENAL CELL CARCINOMA
     Dosage: 50 MG, 1X/DAY
     Route: 048
     Dates: start: 20081008, end: 20090109
  2. VALSARTAN [Concomitant]
     Dosage: UNK
     Route: 048
  3. WARFARIN POTASSIUM [Concomitant]
     Dosage: UNK
     Route: 048
  4. NORVASC [Concomitant]
     Dosage: UNK
     Route: 048
     Dates: start: 20081016
  5. LOXONIN [Concomitant]
     Route: 048
     Dates: start: 20081024, end: 20081029
  6. FLOMOX [Concomitant]
     Route: 048
     Dates: start: 20081024, end: 20081028

REACTIONS (4)
  - BLOOD CREATININE INCREASED [None]
  - C-REACTIVE PROTEIN INCREASED [None]
  - NEUTROPHIL COUNT DECREASED [None]
  - PYREXIA [None]
